FAERS Safety Report 16935986 (Version 1)
Quarter: 2019Q4

REPORT INFORMATION
  Report Type: Spontaneous
  Country: US (occurrence: US)
  Receive Date: 20191018
  Receipt Date: 20191018
  Transmission Date: 20200122
  Serious: No
  Sender: FDA-Public Use
  Company Number: None

PATIENT
  Age: 80 Year
  Sex: Female
  Weight: 84.37 kg

DRUGS (1)
  1. CAPECITABINE. [Suspect]
     Active Substance: CAPECITABINE
     Indication: CHEMOTHERAPY
     Dosage: ?          OTHER FREQUENCY:BID X 2W ON, 2W OF;?
     Route: 048
     Dates: start: 20190713

REACTIONS (1)
  - Disease progression [None]
